FAERS Safety Report 10801170 (Version 1)
Quarter: 2015Q1

REPORT INFORMATION
  Report Type: Report from Study
  Country: JP (occurrence: JP)
  Receive Date: 20150217
  Receipt Date: 20150217
  Transmission Date: 20150721
  Serious: Yes (Death, Hospitalization)
  Sender: FDA-Public Use
  Company Number: JP-BRISTOL-MYERS SQUIBB COMPANY-21615885

PATIENT
  Age: 83 Year
  Sex: Female
  Weight: 55 kg

DRUGS (7)
  1. SAMSCA [Concomitant]
     Active Substance: TOLVAPTAN
     Indication: LEFT VENTRICULAR DYSFUNCTION
     Route: 065
  2. AMIODARONE HCL [Concomitant]
     Active Substance: AMIODARONE HYDROCHLORIDE
     Indication: VENTRICULAR TACHYCARDIA
     Route: 065
  3. MEXITIL [Concomitant]
     Active Substance: MEXILETINE HYDROCHLORIDE
     Indication: VENTRICULAR TACHYCARDIA
     Route: 065
  4. APIXABAN [Suspect]
     Active Substance: APIXABAN
     Indication: CEREBROVASCULAR ACCIDENT PROPHYLAXIS
     Dosage: 5 MG, BID
     Route: 048
     Dates: start: 20140730, end: 20140811
  5. TAKEPRON [Concomitant]
     Active Substance: LANSOPRAZOLE
     Indication: PROPHYLAXIS
     Route: 065
  6. DIART [Concomitant]
     Active Substance: AZOSEMIDE
     Indication: LEFT VENTRICULAR DYSFUNCTION
     Route: 065
  7. PIMOBENDAN [Concomitant]
     Active Substance: PIMOBENDAN
     Indication: LEFT VENTRICULAR DYSFUNCTION
     Route: 065

REACTIONS (3)
  - Ventricular tachycardia [Unknown]
  - Cardiac failure [Fatal]
  - Atrial fibrillation [Unknown]

NARRATIVE: CASE EVENT DATE: 20140818
